FAERS Safety Report 19449418 (Version 7)
Quarter: 2022Q2

REPORT INFORMATION
  Report Type: Report from Study
  Country: CN (occurrence: CN)
  Receive Date: 20210622
  Receipt Date: 20220526
  Transmission Date: 20220721
  Serious: Yes (Hospitalization, Other)
  Sender: FDA-Public Use
  Company Number: CN-BRISTOL-MYERS SQUIBB COMPANY-BMS-2021-058109

PATIENT
  Age: 64 Year
  Sex: Male
  Weight: 80 kg

DRUGS (19)
  1. ETOPOSIDE [Suspect]
     Active Substance: ETOPOSIDE
     Indication: Non-small cell lung cancer
     Dosage: MOST RECENT DOSE ON 04-JUN-2021
     Route: 042
     Dates: start: 20210602
  2. CARBOPLATIN [Suspect]
     Active Substance: CARBOPLATIN
     Indication: Non-small cell lung cancer
     Dosage: MOST RECENT DOSE ON 02-JUN-2021
     Route: 042
     Dates: start: 20210602
  3. PHOSPHOLIPID [Concomitant]
     Active Substance: PHOSPHOLIPID
     Indication: Prophylaxis
     Dosage: BD; TWICE PER DAY
     Route: 048
     Dates: start: 20210524, end: 20210531
  4. VITAMIN C [Concomitant]
     Active Substance: ASCORBIC ACID
     Indication: Prophylaxis
     Dosage: EVERY 24 HOURS
     Route: 042
     Dates: start: 20210602, end: 20210604
  5. VITAMIN C [Concomitant]
     Active Substance: ASCORBIC ACID
     Route: 042
     Dates: start: 20210602, end: 20210602
  6. VITAMIN C [Concomitant]
     Active Substance: ASCORBIC ACID
     Route: 042
     Dates: start: 20210603, end: 20210603
  7. VITAMIN C [Concomitant]
     Active Substance: ASCORBIC ACID
     Route: 042
     Dates: start: 20210604, end: 20210604
  8. DEXAMETHASONE SODIUM PHOSPHATE [Concomitant]
     Active Substance: DEXAMETHASONE SODIUM PHOSPHATE
     Indication: Prophylaxis
     Dosage: EVERY 24 HOURS
     Route: 042
     Dates: start: 20210602, end: 20210604
  9. DEXAMETHASONE SODIUM PHOSPHATE [Concomitant]
     Active Substance: DEXAMETHASONE SODIUM PHOSPHATE
     Route: 042
     Dates: start: 20210602, end: 20210602
  10. DEXAMETHASONE SODIUM PHOSPHATE [Concomitant]
     Active Substance: DEXAMETHASONE SODIUM PHOSPHATE
     Route: 042
     Dates: start: 20210603, end: 20210603
  11. DEXAMETHASONE SODIUM PHOSPHATE [Concomitant]
     Active Substance: DEXAMETHASONE SODIUM PHOSPHATE
     Route: 042
     Dates: start: 20210604, end: 20210604
  12. TROPISETRON HYDROCHLORIDE [Concomitant]
     Active Substance: TROPISETRON HYDROCHLORIDE
     Indication: Prophylaxis
     Dosage: EVERY 24 HOURS
     Route: 042
     Dates: start: 20210602, end: 20210604
  13. TROPISETRON HYDROCHLORIDE [Concomitant]
     Active Substance: TROPISETRON HYDROCHLORIDE
     Route: 042
     Dates: start: 20210602, end: 20210602
  14. TROPISETRON HYDROCHLORIDE [Concomitant]
     Active Substance: TROPISETRON HYDROCHLORIDE
     Route: 042
     Dates: start: 20210603, end: 20210603
  15. TROPISETRON HYDROCHLORIDE [Concomitant]
     Active Substance: TROPISETRON HYDROCHLORIDE
     Route: 042
     Dates: start: 20210604, end: 20210604
  16. METOCLOPRAMIDE DIHYDROCHLORIDE [Concomitant]
     Indication: Prophylaxis
     Dosage: EVERY 24 HOURS
     Route: 030
     Dates: start: 20210602, end: 20210604
  17. METOCLOPRAMIDE DIHYDROCHLORIDE [Concomitant]
     Route: 030
     Dates: start: 20210602, end: 20210602
  18. METOCLOPRAMIDE DIHYDROCHLORIDE [Concomitant]
     Route: 030
     Dates: start: 20210603, end: 20210603
  19. METOCLOPRAMIDE DIHYDROCHLORIDE [Concomitant]
     Route: 030
     Dates: start: 20210604, end: 20210604

REACTIONS (1)
  - Myelosuppression [Recovered/Resolved]

NARRATIVE: CASE EVENT DATE: 20210613
